FAERS Safety Report 8552783-7 (Version None)
Quarter: 2012Q3

REPORT INFORMATION
  Report Type: 
  Country: None (occurrence: None)
  Receive Date: 20120731
  Receipt Date: 20120725
  Transmission Date: 20120928
  Serious: Yes (Hospitalization)
  Sender: FDA-Public Use
  Company Number: PHHY2012BR065215

PATIENT
  Sex: Female

DRUGS (1)
  1. AMLODOPINE BESYLATE AND VALSARTAN [Suspect]
     Dosage: UNK UKN, UNK
     Dates: start: 20060101

REACTIONS (1)
  - RENAL DISORDER [None]
